FAERS Safety Report 16667784 (Version 1)
Quarter: 2019Q3

REPORT INFORMATION
  Report Type: Report from Study
  Country: ES (occurrence: ES)
  Receive Date: 20190805
  Receipt Date: 20190805
  Transmission Date: 20191004
  Serious: Yes (Other)
  Sender: FDA-Public Use
  Company Number: ES-ROCHE-2370564

PATIENT

DRUGS (8)
  1. DACLATASVIR. [Suspect]
     Active Substance: DACLATASVIR
     Indication: HEPATITIS C
     Route: 065
  2. LEDIPASVIR;SOFOSBUVIR [Suspect]
     Active Substance: LEDIPASVIR\SOFOSBUVIR
     Indication: HEPATITIS C
     Route: 065
  3. SOFOSBUVIR [Suspect]
     Active Substance: SOFOSBUVIR
     Indication: HEPATITIS C
     Route: 065
  4. PEGINTERFERON ALFA-2A. [Suspect]
     Active Substance: PEGINTERFERON ALFA-2A
     Indication: HEPATITIS C
     Route: 065
  5. OMBITASVIR;PARITAPREVIR;RITONAVIR [Suspect]
     Active Substance: OMBITASVIR\PARITAPREVIR\RITONAVIR
     Indication: HEPATITIS C
     Route: 065
  6. DACLATASVIR. [Suspect]
     Active Substance: DACLATASVIR
     Indication: HEPATITIS C
     Route: 065
  7. RIBAVIRIN. [Suspect]
     Active Substance: RIBAVIRIN
     Indication: HEPATITIS C
     Route: 065
  8. SIMEPREVIR [Suspect]
     Active Substance: SIMEPREVIR
     Indication: HEPATITIS C
     Route: 065

REACTIONS (19)
  - Rash [Unknown]
  - Dermatitis [Unknown]
  - Dizziness [Unknown]
  - Renal failure [Unknown]
  - Discomfort [Unknown]
  - Hyperbilirubinaemia [Unknown]
  - Weight decreased [Unknown]
  - Pruritus [Unknown]
  - Headache [Unknown]
  - Hyperglycaemia [Unknown]
  - Dyspepsia [Unknown]
  - Diarrhoea [Unknown]
  - Asthenia [Unknown]
  - Dry skin [Unknown]
  - Fatigue [Unknown]
  - Influenza like illness [Unknown]
  - Insomnia [Unknown]
  - Alopecia [Unknown]
  - Nausea [Unknown]
